FAERS Safety Report 6086842-8 (Version None)
Quarter: 2009Q1

REPORT INFORMATION
  Report Type: 
  Country: None (occurrence: None)
  Receive Date: 20090223
  Receipt Date: 20090209
  Transmission Date: 20090719
  Serious: Yes (Life-Threatening, Hospitalization, Other)
  Sender: FDA-Public Use
  Company Number: CA-ELI_LILLY_AND_COMPANY-CA200902002295

PATIENT
  Age: 50 Year
  Sex: Female

DRUGS (2)
  1. FORTEO [Suspect]
     Indication: OSTEOPOROSIS
     Dosage: 20 UG, DAILY (1/D)
     Route: 058
     Dates: start: 20080101, end: 20081224
  2. FORTEO [Suspect]
     Dosage: 20 UG, DAILY (1/D)
     Route: 058
     Dates: start: 20081230

REACTIONS (7)
  - AORTIC DISSECTION [None]
  - AORTIC RUPTURE [None]
  - BACK PAIN [None]
  - BLOOD PRESSURE DECREASED [None]
  - CARDIAC VALVE DISEASE [None]
  - LOSS OF CONSCIOUSNESS [None]
  - VOMITING [None]
